FAERS Safety Report 8033501-8 (Version None)
Quarter: 2012Q1

REPORT INFORMATION
  Report Type: 
  Country: None (occurrence: None)
  Receive Date: 20120110
  Receipt Date: 20120103
  Transmission Date: 20120608
  Serious: Yes (Other)
  Sender: FDA-Public Use
  Company Number: US-JNJFOC-20111202980

PATIENT
  Sex: Male
  Weight: 113.4 kg

DRUGS (13)
  1. ADVAIR DISKUS 100/50 [Concomitant]
     Indication: CHRONIC OBSTRUCTIVE PULMONARY DISEASE
     Route: 055
     Dates: start: 20090101
  2. ALL OTHER THERAPEUTIC DRUG [Concomitant]
     Indication: PROSTATOMEGALY
  3. REMICADE [Suspect]
     Route: 042
     Dates: start: 20111121
  4. PRAVASTATIN [Concomitant]
     Indication: BLOOD CHOLESTEROL
     Route: 048
  5. XOPENEX [Concomitant]
     Route: 055
  6. REMICADE [Suspect]
     Indication: COLITIS ULCERATIVE
     Route: 042
     Dates: start: 20110901
  7. REMICADE [Suspect]
     Route: 042
     Dates: start: 20100101
  8. ALBUTEROL [Concomitant]
     Indication: CHRONIC OBSTRUCTIVE PULMONARY DISEASE
     Route: 055
  9. VITAMIN D [Concomitant]
     Route: 048
  10. REMICADE [Suspect]
     Route: 042
     Dates: start: 20111012
  11. GLYBURIDE [Concomitant]
     Indication: TYPE 2 DIABETES MELLITUS
     Route: 048
     Dates: start: 20080101
  12. ASPIRIN [Concomitant]
     Indication: PROPHYLAXIS
     Route: 048
  13. PROSCAR [Concomitant]
     Indication: PROSTATOMEGALY
     Route: 048

REACTIONS (7)
  - HYPOKINESIA [None]
  - RASH [None]
  - URTICARIA [None]
  - RENAL PAIN [None]
  - PAIN [None]
  - INFUSION RELATED REACTION [None]
  - PRURITUS GENERALISED [None]
